FAERS Safety Report 20728610 (Version 1)
Quarter: 2022Q2

REPORT INFORMATION
  Report Type: Spontaneous
  Country: US (occurrence: US)
  Receive Date: 20220420
  Receipt Date: 20220420
  Transmission Date: 20220720
  Serious: Yes (Hospitalization, Other)
  Sender: FDA-Public Use
  Company Number: US-CIPLA LTD.-2022US02479

PATIENT

DRUGS (2)
  1. DECITABINE [Suspect]
     Active Substance: DECITABINE
     Indication: Myelodysplastic syndrome
     Dosage: 20 MILLIGRAM/SQ. METER, DAYS 1-10
     Route: 065
  2. VYXEOS [Suspect]
     Active Substance: CYTARABINE\DAUNORUBICIN
     Indication: Myelodysplastic syndrome
     Dosage: 100 UNITS/SQ.METER, DAYS 1,3,5
     Route: 065

REACTIONS (5)
  - End stage renal disease [Unknown]
  - Thrombotic microangiopathy [Unknown]
  - Nephrotic syndrome [Unknown]
  - Febrile neutropenia [Unknown]
  - Acute kidney injury [Unknown]
